FAERS Safety Report 5166411-4 (Version None)
Quarter: 2006Q4

REPORT INFORMATION
  Report Type: 
  Country: None (occurrence: None)
  Receive Date: 20061129
  Receipt Date: 20061117
  Transmission Date: 20070319
  Serious: Yes (Hospitalization)
  Sender: FDA-Public Use
  Company Number: 2006BI016878

PATIENT
  Age: 41 Year
  Sex: Female
  Weight: 104.3273 kg

DRUGS (13)
  1. AVONEX [Suspect]
     Indication: MULTIPLE SCLEROSIS
     Dosage: 30 UG; QW; IM
  2. AVONEX [Suspect]
     Indication: MULTIPLE SCLEROSIS
     Dosage: 30 UG; QW; IM
     Route: 030
  3. AVONEX [Suspect]
     Indication: MULTIPLE SCLEROSIS
     Dosage: 30 UG; QW; IM
     Route: 030
  4. LIDODERM PATCH [Concomitant]
  5. CATAPRES-TTS-1 [Concomitant]
  6. TRAMADOL HCL [Concomitant]
  7. DEPAKOTE [Concomitant]
  8. ZONEGRAN [Concomitant]
  9. KLONOPIN [Concomitant]
  10. ZANAFLEX [Concomitant]
  11. BACLOFEN [Concomitant]
  12. OXYCODONE HCL [Concomitant]
  13. CYMBALTA [Concomitant]

REACTIONS (4)
  - CONDITION AGGRAVATED [None]
  - HEADACHE [None]
  - MULTIPLE SCLEROSIS [None]
  - OPTIC NEURITIS [None]
